FAERS Safety Report 10419819 (Version 2)
Quarter: 2014Q3

REPORT INFORMATION
  Report Type: Spontaneous
  Country: US (occurrence: None)
  Receive Date: 20140828
  Receipt Date: 20140919
  Transmission Date: 20150326
  Serious: Yes (Other)
  Sender: FDA-Public Use
  Company Number: ADR-2014-01530

PATIENT
  Age: 18 Year
  Sex: Male

DRUGS (1)
  1. GABLOFEN [Suspect]
     Active Substance: BACLOFEN
     Indication: MUSCLE SPASTICITY
     Dosage: 450 MCG/DAY

REACTIONS (6)
  - Convulsion [None]
  - Hyperhidrosis [None]
  - Pyrexia [None]
  - Feeling hot [None]
  - Tremor [None]
  - Hypertension [None]
